FAERS Safety Report 5919606-3 (Version None)
Quarter: 2008Q4

REPORT INFORMATION
  Report Type: 
  Country: None (occurrence: None)
  Receive Date: 20081015
  Receipt Date: 20080718
  Transmission Date: 20090506
  Serious: Yes (Hospitalization, Other)
  Sender: FDA-Public Use
  Company Number: US-BRISTOL-MYERS SQUIBB COMPANY-14268999

PATIENT
  Age: 70 Year
  Sex: Male

DRUGS (2)
  1. KENALOG-40 [Suspect]
     Indication: ARTHRALGIA
     Dosage: 5ML VIAL; 1 DOSAGE FORM=40 MG/ML INJECTION.
     Dates: start: 20071217
  2. BUPIVACAINE [Suspect]
     Indication: ARTHRALGIA
     Dates: start: 20071217

REACTIONS (2)
  - ABSCESS [None]
  - PAIN [None]
